FAERS Safety Report 17874036 (Version 1)
Quarter: 2020Q2

REPORT INFORMATION
  Report Type: Spontaneous
  Country: US (occurrence: US)
  Receive Date: 20200609
  Receipt Date: 20200609
  Transmission Date: 20200714
  Serious: Yes (Hospitalization)
  Sender: FDA-Public Use
  Company Number: US-009507513-2006USA002465

PATIENT
  Age: 79 Year
  Sex: Female

DRUGS (3)
  1. GRANIX [Concomitant]
     Active Substance: TBO-FILGRASTIM
     Dosage: UNK 480 MCG/0.8 ML
  2. BEXAROTENE. [Concomitant]
     Active Substance: BEXAROTENE
     Dosage: 75 MILLIGRAM
  3. INTRON A [Suspect]
     Active Substance: INTERFERON ALFA-2B
     Indication: CUTANEOUS T-CELL LYMPHOMA
     Dosage: 1 MILLION INTERNATIONAL UNIT, Q3W
     Route: 058
     Dates: start: 20181114

REACTIONS (2)
  - Product use in unapproved indication [Unknown]
  - Product dose omission [Unknown]

NARRATIVE: CASE EVENT DATE: 20200527
